FAERS Safety Report 24092263 (Version 2)
Quarter: 2025Q1

REPORT INFORMATION
  Report Type: Spontaneous
  Country: US (occurrence: US)
  Receive Date: 20240715
  Receipt Date: 20250304
  Transmission Date: 20250409
  Serious: No
  Sender: ABBVIE
  Company Number: US-ABBVIE-5837650

PATIENT
  Sex: Female
  Weight: 90 kg

DRUGS (1)
  1. VRAYLAR [Suspect]
     Active Substance: CARIPRAZINE
     Indication: Depression
     Dosage: FORM STRENGTH UNITS:1.5 MILLIGRAM
     Route: 048
     Dates: start: 20240613, end: 20240629

REACTIONS (1)
  - Maternal exposure during pregnancy [Unknown]
